FAERS Safety Report 10551529 (Version 2)
Quarter: 2014Q4

REPORT INFORMATION
  Report Type: Spontaneous
  Country: US (occurrence: US)
  Receive Date: 20141029
  Receipt Date: 20141111
  Transmission Date: 20150529
  Serious: No
  Sender: FDA-Public Use
  Company Number: US-PFIZER INC-2014292371

PATIENT
  Age: 18 Year
  Sex: Male
  Weight: 75.74 kg

DRUGS (1)
  1. CLINDAMYCIN PHOSPHATE. [Suspect]
     Active Substance: CLINDAMYCIN PHOSPHATE
     Indication: ACNE
     Dosage: UNK
     Route: 003
     Dates: start: 20140527, end: 20141018

REACTIONS (5)
  - Facial pain [Unknown]
  - Erythema [Unknown]
  - Burning sensation [Unknown]
  - Acne [Unknown]
  - Product quality issue [Unknown]

NARRATIVE: CASE EVENT DATE: 2014
